FAERS Safety Report 5139585-9 (Version None)
Quarter: 2006Q4

REPORT INFORMATION
  Report Type: 
  Country: None (occurrence: None)
  Receive Date: 20061024
  Receipt Date: 20061017
  Transmission Date: 20070319
  Serious: Yes (Death)
  Sender: FDA-Public Use
  Company Number: 2006-149209-NL

PATIENT
  Age: 69 Year
  Sex: Female

DRUGS (4)
  1. DANAPAROID SODIUM [Suspect]
     Indication: HEPARIN-INDUCED THROMBOCYTOPENIA
     Dosage: 2500 + 400 + 300 + 150 ANTI_XA ONCE INTRAVENOUS (NOS) - SEE IMAGE
     Route: 042
  2. DANAPAROID SODIUM [Suspect]
     Indication: HEPARIN-INDUCED THROMBOCYTOPENIA
     Dosage: 2500 + 400 + 300 + 150 ANTI_XA ONCE INTRAVENOUS (NOS) - SEE IMAGE
     Route: 042
  3. HEPARIN [Concomitant]
  4. ENOXAPARIN SODIUM [Concomitant]

REACTIONS (3)
  - ARTHRITIS BACTERIAL [None]
  - DEEP VEIN THROMBOSIS [None]
  - SEPSIS [None]
